FAERS Safety Report 14119248 (Version 2)
Quarter: 2018Q1

REPORT INFORMATION
  Report Type: Spontaneous
  Country: US (occurrence: US)
  Receive Date: 20171024
  Receipt Date: 20180227
  Transmission Date: 20180508
  Serious: No
  Sender: FDA-Public Use
  Company Number: US-PFIZER INC-2017450288

PATIENT
  Age: 65 Year
  Sex: Female
  Weight: 83.45 kg

DRUGS (7)
  1. BENADRYL [Concomitant]
     Active Substance: DIPHENHYDRAMINE HYDROCHLORIDE
     Dosage: 1 DF, 1X/DAY  (ONE AT NIGHT)
  2. XELJANZ [Suspect]
     Active Substance: TOFACITINIB CITRATE
     Indication: RHEUMATOID ARTHRITIS
     Dosage: 5 MG, 2X/DAY [5 MG IN MORNING AND 5 MG AT NIGHT]
     Dates: start: 2012
  3. DULOXETINE. [Suspect]
     Active Substance: DULOXETINE
     Indication: DEPRESSION
     Dosage: 30 MG, 2X/DAY [30MG CAPSULE-1 CAPSULE TAKEN BY MOUTH IN THE MORNING, 1 CAPSULE TAKEN BY]
     Route: 048
  4. DULOXETINE. [Suspect]
     Active Substance: DULOXETINE
     Indication: FIBROMYALGIA
     Dosage: 60 MG, DAILY
     Route: 048
     Dates: end: 2014
  5. XELJANZ [Suspect]
     Active Substance: TOFACITINIB CITRATE
     Dosage: 5 MG, DAILY
     Route: 048
  6. IBUPROFEN. [Concomitant]
     Active Substance: IBUPROFEN
     Indication: RHEUMATOID ARTHRITIS
  7. IBUPROFEN. [Concomitant]
     Active Substance: IBUPROFEN
     Indication: FIBROMYALGIA
     Dosage: 400 MG, DAILY [TRY TO TAKE ONLY 2 TABLETS BY MOUTH DAILY]
     Route: 048

REACTIONS (7)
  - Pain in extremity [Unknown]
  - Tremor [Not Recovered/Not Resolved]
  - Malaise [Unknown]
  - Gait disturbance [Not Recovered/Not Resolved]
  - Back pain [Unknown]
  - Intentional product misuse [Unknown]
  - Dysstasia [Unknown]

NARRATIVE: CASE EVENT DATE: 201801
